FAERS Safety Report 19180596 (Version 1)
Quarter: 2021Q2

REPORT INFORMATION
  Report Type: Spontaneous
  Country: US (occurrence: US)
  Receive Date: 20210426
  Receipt Date: 20210426
  Transmission Date: 20210717
  Serious: Yes (Other)
  Sender: FDA-Public Use
  Company Number: None

PATIENT
  Sex: Female
  Weight: 59.4 kg

DRUGS (19)
  1. BIOTIN 1000 MCG TAB [Concomitant]
  2. SENNOSIDES. [Concomitant]
     Active Substance: SENNOSIDES
  3. ALENDRONATE 70 MG TAB [Concomitant]
  4. KEPPRA 500MG TAB [Concomitant]
  5. LORAZEPAM 1 ,MG TAB [Concomitant]
  6. TEMOZOLOMIDE. [Suspect]
     Active Substance: TEMOZOLOMIDE
     Indication: BRAIN NEOPLASM MALIGNANT
     Route: 048
     Dates: start: 20210416, end: 20210425
  7. LEVOTHYROXINE 50 MCG TAB [Concomitant]
  8. DIAZEPAM 5 MG TAB [Concomitant]
  9. AMILORIDE 5 MG TAB [Concomitant]
  10. VITAMIN D3 10 MCG [Concomitant]
  11. CELEXA 20 MG TAB [Concomitant]
  12. MIRALAX [Concomitant]
     Active Substance: POLYETHYLENE GLYCOL 3350
  13. PRAVASTATIN 20 MG TAB [Concomitant]
     Active Substance: PRAVASTATIN SODIUM
  14. TEMOZOLOMIDE. [Suspect]
     Active Substance: TEMOZOLOMIDE
     Indication: BRAIN NEOPLASM MALIGNANT
     Route: 048
     Dates: start: 20210416, end: 20210425
  15. FAMOTIDINE 40 MG TAB [Concomitant]
  16. CENTRUM TAB [Concomitant]
  17. DOCUSATE 100 MG CAP [Concomitant]
  18. ONDANSETRON 4 MG TAB [Concomitant]
  19. VISTARIL 25 MG [Concomitant]

REACTIONS (1)
  - Disease progression [None]
